FAERS Safety Report 6983424-8 (Version None)
Quarter: 2010Q3

REPORT INFORMATION
  Report Type: 
  Country: None (occurrence: None)
  Receive Date: 20100913
  Receipt Date: 20100913
  Transmission Date: 20110219
  Serious: Yes (Other)
  Sender: FDA-Public Use
  Company Number: None

PATIENT
  Age: 25 Year
  Sex: Male
  Weight: 106.5953 kg

DRUGS (2)
  1. OXYCONTIN [Suspect]
     Indication: BACK PAIN
     Dosage: 80MG 3 TIMES PER DAY PO
     Route: 048
     Dates: start: 20040101, end: 20100911
  2. OXYCONTIN [Suspect]
     Indication: INTERVERTEBRAL DISC DISORDER
     Dosage: 80MG 3 TIMES PER DAY PO
     Route: 048
     Dates: start: 20040101, end: 20100911

REACTIONS (4)
  - DRUG INEFFECTIVE [None]
  - DRUG WITHDRAWAL SYNDROME [None]
  - PRODUCT FORMULATION ISSUE [None]
  - VOMITING [None]
